FAERS Safety Report 8171353-6 (Version None)
Quarter: 2012Q1

REPORT INFORMATION
  Report Type: 
  Country: None (occurrence: None)
  Receive Date: 20120104
  Receipt Date: 20111206
  Transmission Date: 20120608
  Serious: No
  Sender: FDA-Public Use
  Company Number: 2011HGS-002922

PATIENT
  Age: 49 Year
  Sex: Female
  Weight: 168 kg

DRUGS (13)
  1. NASONEX(MOMETASONE FUROATE)(MOMETASONE FUROATE) [Concomitant]
  2. BENICAR [Concomitant]
  3. PLAQUENIL (HYDROXYCHLOROQUINE SULFATE)(HYDROXYCHLOROQUINE SULFATE) [Concomitant]
  4. VERAPAMIL [Concomitant]
  5. PROTONIX [Concomitant]
  6. CRESTOR [Concomitant]
  7. BENLYSTA [Suspect]
     Indication: SYSTEMIC LUPUS ERYTHEMATOSUS
     Dosage: 10 MG/KG, 1 IN 28 D,  INTRAVENOUS DRIP
     Route: 041
     Dates: start: 20110927
  8. TRAMADOL HCL [Concomitant]
  9. FLOMAX [Concomitant]
  10. NEURONTIN [Concomitant]
  11. LEVOXYL(LEVOTHYROXINE SODIUM) (LEVOTHYROXINE SODIUM) [Concomitant]
  12. APIDRA (INSULIN) (INSULIN) [Concomitant]
  13. NAPROXEN [Concomitant]

REACTIONS (4)
  - GASTROENTERITIS VIRAL [None]
  - HERPES ZOSTER [None]
  - VOMITING [None]
  - NAUSEA [None]
